FAERS Safety Report 8877584 (Version 1)
Quarter: 2012Q4

REPORT INFORMATION
  Report Type: Spontaneous
  Country: US (occurrence: None)
  Receive Date: 20121026
  Receipt Date: 20121026
  Transmission Date: 20130627
  Serious: Yes (Other)
  Sender: FDA-Public Use
  Company Number: None

PATIENT
  Age: 64 Year
  Sex: Male
  Weight: 111 kg

DRUGS (2)
  1. PROVENGE [Suspect]
     Indication: PROSTATE CANCER
     Route: 042
     Dates: end: 20120927
  2. PROVENGE [Suspect]
     Indication: PROSTATE CANCER
     Dates: start: 20120927

REACTIONS (2)
  - Visual impairment [None]
  - Miosis [None]
